FAERS Safety Report 15479068 (Version 4)
Quarter: 2019Q4

REPORT INFORMATION
  Report Type: Report from Study
  Country: HU (occurrence: HU)
  Receive Date: 20181009
  Receipt Date: 20191029
  Transmission Date: 20200122
  Serious: Yes (Death, Life-Threatening)
  Sender: FDA-Public Use
  Company Number: HU-PFIZER INC-2018406182

PATIENT
  Age: 68 Year
  Sex: Female
  Weight: 85 kg

DRUGS (24)
  1. IRINOTECAN HCL [Suspect]
     Active Substance: IRINOTECAN HYDROCHLORIDE
     Dosage: 651 MG, TOTAL DAILY DOSE, CYCLE 3
     Route: 041
     Dates: start: 20180807, end: 20180816
  2. MEGYRINA [Concomitant]
     Dosage: UNK
     Dates: start: 20180717
  3. SUPRASTIN [Concomitant]
     Active Substance: CHLOROPYRAMINE HYDROCHLORIDE
     Dosage: UNK
     Dates: start: 20180723, end: 20180729
  4. CLEXANE [Concomitant]
     Active Substance: ENOXAPARIN SODIUM
     Dosage: UNK
     Dates: start: 201712
  5. NACL [Concomitant]
     Active Substance: SODIUM CHLORIDE
     Indication: PREMEDICATION
     Dosage: UNK
     Dates: start: 20180625, end: 20180807
  6. DINUTUXIMAB [Suspect]
     Active Substance: DINUTUXIMAB
     Dosage: 29 MG, TOTAL DAILY DOSE, CYCLE 3
     Route: 041
     Dates: start: 20180807, end: 20180816
  7. MILURIT [Concomitant]
     Active Substance: ALLOPURINOL
     Dosage: UNK
     Dates: start: 2005
  8. LORDESTIN [Concomitant]
     Dosage: UNK
     Dates: start: 20180730
  9. DOLFORIN [Concomitant]
     Active Substance: FENTANYL
     Dosage: UNK
     Dates: start: 20180807
  10. LUCETAM [Concomitant]
     Dosage: UNK
     Dates: start: 201501
  11. SITAGLIPTINE [Concomitant]
     Active Substance: SITAGLIPTIN
     Dosage: UNK
     Dates: start: 2005
  12. PARACETAMOL [Concomitant]
     Active Substance: ACETAMINOPHEN
     Indication: PREMEDICATION
     Dosage: UNK
     Dates: start: 20180625, end: 20180807
  13. DIAPREL [Concomitant]
     Active Substance: GLICLAZIDE
     Dosage: UNK
     Dates: start: 2005
  14. CORYOL [CARVEDILOL] [Concomitant]
     Dosage: UNK
     Dates: start: 2005
  15. LOPEDIUM [Concomitant]
     Active Substance: LOPERAMIDE
     Dosage: UNK
     Dates: start: 20180719
  16. IRINOTECAN HCL [Suspect]
     Active Substance: IRINOTECAN HYDROCHLORIDE
     Indication: SMALL CELL LUNG CANCER
     Dosage: UNK, CYCLIC
     Route: 041
     Dates: start: 20180625
  17. METFORMIN [Concomitant]
     Active Substance: METFORMIN HYDROCHLORIDE
     Dosage: UNK
     Dates: start: 2005
  18. BETASERC [BETAHISTINE] [Concomitant]
     Active Substance: BETAHISTINE
     Dosage: UNK
     Dates: start: 201501
  19. ZOFRAN [Concomitant]
     Active Substance: ONDANSETRON HYDROCHLORIDE
     Indication: PREMEDICATION
     Dosage: UNK
     Dates: start: 20180625, end: 20180807
  20. OROSET [Concomitant]
     Dosage: UNK
     Dates: start: 20180714
  21. DINUTUXIMAB [Suspect]
     Active Substance: DINUTUXIMAB
     Indication: SMALL CELL LUNG CANCER
     Dosage: UNK, CYCLIC
     Route: 041
     Dates: start: 20180625
  22. SOLU-MEDROL [Concomitant]
     Active Substance: METHYLPREDNISOLONE SODIUM SUCCINATE
     Indication: PREMEDICATION
     Dosage: UNK
     Dates: start: 20180625, end: 20180807
  23. ATROPINE. [Concomitant]
     Active Substance: ATROPINE
     Indication: PREMEDICATION
     Dosage: UNK
     Dates: start: 20180626, end: 20180807
  24. SUPRASTINE [Concomitant]
     Indication: PREMEDICATION
     Dosage: UNK
     Dates: start: 20180625, end: 20180807

REACTIONS (1)
  - Neutropenia [Fatal]

NARRATIVE: CASE EVENT DATE: 20180816
